FAERS Safety Report 9908485 (Version 2)
Quarter: 2015Q1

REPORT INFORMATION
  Report Type: Spontaneous
  Country: AU (occurrence: AU)
  Receive Date: 20140219
  Receipt Date: 20150330
  Transmission Date: 20150721
  Serious: Yes (Hospitalization)
  Sender: FDA-Public Use
  Company Number: AU-MYLANLABS-2014S1002688

PATIENT

DRUGS (9)
  1. SOTALOL. [Suspect]
     Active Substance: SOTALOL
     Dosage: 80MG
     Route: 048
  2. VERAPAMIL [Suspect]
     Active Substance: VERAPAMIL HYDROCHLORIDE
     Dosage: 5MG
     Route: 042
  3. DIGOXIN. [Suspect]
     Active Substance: DIGOXIN
     Dosage: 500 MCG
     Route: 042
  4. NOREPINEPHRINE [Suspect]
     Active Substance: NOREPINEPHRINE\NOREPINEPHRINE BITARTRATE
     Indication: CARDIOGENIC SHOCK
     Dosage: UNK
     Route: 065
  5. AMIODARONE [Suspect]
     Active Substance: AMIODARONE
     Dosage: 300MG; ADMINISTERED OVER A DURATION OF 1 HOUR
     Route: 041
  6. EPINEPHRINE. [Suspect]
     Active Substance: EPINEPHRINE
     Indication: CARDIOGENIC SHOCK
     Dosage: UNK
     Route: 065
  7. LEVOSIMENDAN [Suspect]
     Active Substance: LEVOSIMENDAN
     Indication: CARDIOGENIC SHOCK
     Dosage: UNK
     Route: 065
  8. ADENOSINE. [Concomitant]
     Active Substance: ADENOSINE
     Indication: SUPRAVENTRICULAR TACHYCARDIA
     Dosage: 18MG
     Route: 042
  9. DOBUTAMINE [Suspect]
     Active Substance: DOBUTAMINE\DOBUTAMINE HYDROCHLORIDE
     Indication: CARDIOGENIC SHOCK
     Dosage: UNK
     Route: 065

REACTIONS (6)
  - Cardiomyopathy [Recovered/Resolved]
  - Supraventricular tachycardia [Unknown]
  - Hypotension [Recovered/Resolved]
  - Atrial fibrillation [Unknown]
  - Cardiogenic shock [Recovered/Resolved]
  - Condition aggravated [Recovered/Resolved]
